FAERS Safety Report 8904566 (Version 1)
Quarter: 2012Q4

REPORT INFORMATION
  Report Type: 
  Country: US (occurrence: US)
  Receive Date: 20121113
  Receipt Date: 20121113
  Transmission Date: 20130627
  Serious: Yes (Death, Other)
  Sender: FDA-Public Use
  Company Number: US-ELI_LILLY_AND_COMPANY-US201211000776

PATIENT
  Age: 23 Year
  Sex: Male

DRUGS (25)
  1. PROZAC [Suspect]
     Dosage: 1 DF, unknown
  2. CYMBALTA [Suspect]
     Dosage: 1 DF, unknown
  3. ANTIDEPRESSANTS [Concomitant]
     Dosage: 1 DF, unknown
  4. ANALGESICS [Concomitant]
     Dosage: 1 DF, unknown
  5. MUSCLE RELAXANTS [Concomitant]
     Dosage: 1 DF, unknown
  6. OTHER ANTIDEPRESSANTS [Concomitant]
     Dosage: 1 DF, unknown
  7. SEROQUEL [Concomitant]
     Dosage: 1 DF, unknown
  8. EFFEXOR [Concomitant]
     Dosage: 1 DF, unknown
  9. PAXIL [Concomitant]
     Dosage: 1 DF, unknown
  10. REMERON [Concomitant]
     Dosage: 1 DF, unknown
  11. WELLBUTRIN [Concomitant]
     Dosage: 1 DF, unknown
  12. XANAX [Concomitant]
     Dosage: 1 DF, unknown
  13. ZOLOFT [Concomitant]
     Dosage: 1 DF, unknown
  14. ATIVAN [Concomitant]
     Dosage: 1 DF, unknown
  15. CELEXA [Concomitant]
     Dosage: 1 DF, unknown
  16. DEPAKOTE [Concomitant]
     Dosage: 1 DF, unknown
  17. HALDOL [Concomitant]
     Dosage: 1 DF, unknown
  18. KLONOPIN [Concomitant]
     Dosage: 1 DF, unknown
  19. LEXAPRO [Concomitant]
     Dosage: 1 DF, unknown
  20. LITHIUM [Concomitant]
     Dosage: 1 DF, unknown
  21. LUNESTA [Concomitant]
     Dosage: 1 DF, unknown
  22. COMPAZINE [Concomitant]
     Dosage: 1 DF, unknown
  23. DESYREL [Concomitant]
     Dosage: 1 DF, unknown
  24. TRILEPTAL [Concomitant]
     Dosage: 1 DF, unknown
  25. VALIUM [Concomitant]
     Dosage: 1 DF, unknown

REACTIONS (1)
  - Death [Fatal]
